FAERS Safety Report 7494279-X (Version None)
Quarter: 2011Q2

REPORT INFORMATION
  Report Type: 
  Country: None (occurrence: None)
  Receive Date: 20110520
  Receipt Date: 20110120
  Transmission Date: 20111010
  Serious: Yes (Hospitalization)
  Sender: FDA-Public Use
  Company Number: US-BAYER-201020413NA

PATIENT
  Age: 42 Year
  Sex: Female
  Weight: 75 kg

DRUGS (7)
  1. ZOFRAN [Concomitant]
     Indication: PRODUCT USED FOR UNKNOWN INDICATION
     Route: 042
     Dates: start: 20090331
  2. YAZ [Suspect]
     Indication: CONTRACEPTION
     Route: 048
     Dates: start: 20070604, end: 20090611
  3. AMOXICILLIN [Concomitant]
     Indication: PRODUCT USED FOR UNKNOWN INDICATION
     Dates: start: 20080318, end: 20080328
  4. IBUPROFEN [Concomitant]
     Indication: PRODUCT USED FOR UNKNOWN INDICATION
     Dates: start: 20000101
  5. SALINE SOLUTIONS [Concomitant]
     Indication: PRODUCT USED FOR UNKNOWN INDICATION
     Route: 042
     Dates: start: 20090331
  6. UNCODEABLE ^UNCLASSIFIABLE^ [Concomitant]
     Route: 042
     Dates: start: 20090331
  7. DEMEROL [Concomitant]
     Indication: PRODUCT USED FOR UNKNOWN INDICATION
     Route: 042
     Dates: start: 20090331

REACTIONS (5)
  - CHOLELITHIASIS [None]
  - NAUSEA [None]
  - CHOLECYSTITIS INFECTIVE [None]
  - ABDOMINAL PAIN [None]
  - VOMITING [None]
